FAERS Safety Report 8359189-4 (Version None)
Quarter: 2012Q2

REPORT INFORMATION
  Report Type: 
  Country: None (occurrence: None)
  Receive Date: 20120511
  Receipt Date: 20120511
  Transmission Date: 20120825
  Serious: Yes (Other)
  Sender: FDA-Public Use
  Company Number: None

PATIENT
  Sex: Female
  Weight: 46.7205 kg

DRUGS (1)
  1. AMLODIPINE [Suspect]
     Indication: BLOOD PRESSURE DECREASED
     Dosage: 2.5 MG TAB 1 PER DAY CLINIC
     Dates: start: 20120320, end: 20120415

REACTIONS (9)
  - SWELLING FACE [None]
  - JOINT SWELLING [None]
  - PRURITUS [None]
  - CARDIAC DISORDER [None]
  - OEDEMA PERIPHERAL [None]
  - FATIGUE [None]
  - DYSPNOEA [None]
  - VISION BLURRED [None]
  - AURICULAR SWELLING [None]
